FAERS Safety Report 5658219-8 (Version None)
Quarter: 2008Q1

REPORT INFORMATION
  Report Type: 
  Country: None (occurrence: None)
  Receive Date: 20080310
  Receipt Date: 20070115
  Transmission Date: 20080703
  Serious: No
  Sender: FDA-Public Use
  Company Number: US-BAYER-200710162BCC

PATIENT
  Age: 78 Year
  Sex: Female
  Weight: 62 kg

DRUGS (7)
  1. ALEVE [Suspect]
     Indication: ARTHRITIS
     Dosage: TOTAL DAILY DOSE: 220 MG  UNIT DOSE: 220 MG
     Route: 048
     Dates: start: 20070112
  2. MICARDIS [Concomitant]
  3. XANAX [Concomitant]
  4. ZYPREXA [Concomitant]
  5. PROZAC [Concomitant]
  6. CENTRUM VITAMIN [Concomitant]
  7. CALCIUM SUPPLEMENT [Concomitant]

REACTIONS (1)
  - NAUSEA [None]
